FAERS Safety Report 14492525 (Version 2)
Quarter: 2018Q2

REPORT INFORMATION
  Report Type: Spontaneous
  Country: JP (occurrence: JP)
  Receive Date: 20180206
  Receipt Date: 20180514
  Transmission Date: 20180711
  Serious: Yes (Hospitalization, Other)
  Sender: FDA-Public Use
  Company Number: JP-PFIZER INC-2018049930

PATIENT
  Age: 83 Year
  Sex: Male

DRUGS (12)
  1. CHAMPIX [Suspect]
     Active Substance: VARENICLINE TARTRATE
     Dosage: 0.5 MG, 2X/DAY
     Route: 048
     Dates: start: 20180116, end: 20180119
  2. BUP-4 [Suspect]
     Active Substance: PROPIVERINE
     Dosage: 20 MG, 1X/DAY
  3. URIEF [Suspect]
     Active Substance: SILODOSIN
     Dosage: 4 MG, 2X/DAY
  4. ACTOS [Suspect]
     Active Substance: PIOGLITAZONE HYDROCHLORIDE
     Dosage: 15 MG, 1X/DAY
  5. SUREPOST [Suspect]
     Active Substance: REPAGLINIDE
     Dosage: 0.25 MG, 3X/DAY
  6. CHAMPIX [Suspect]
     Active Substance: VARENICLINE TARTRATE
     Dosage: 1 MG, 2X/DAY
     Route: 048
     Dates: start: 20180120, end: 20180201
  7. BAYASPIRIN [Suspect]
     Active Substance: ASPIRIN
     Dosage: 100 MG, 1X/DAY
  8. TRULICITY [Suspect]
     Active Substance: DULAGLUTIDE
     Dosage: 0.75 MG, WEEKLY
     Route: 058
  9. CHAMPIX [Suspect]
     Active Substance: VARENICLINE TARTRATE
     Indication: SMOKING CESSATION THERAPY
     Dosage: 0.5 MG, 1X/DAY
     Route: 048
     Dates: start: 20180113, end: 20180115
  10. LANSOPRAZOLE. [Suspect]
     Active Substance: LANSOPRAZOLE
     Indication: GASTROOESOPHAGEAL REFLUX DISEASE
     Dosage: 15 MG, 1X/DAY
     Dates: start: 20171215, end: 20180205
  11. CRESTOR [Suspect]
     Active Substance: ROSUVASTATIN CALCIUM
     Dosage: 2.5 MG, 1X/DAY
  12. PURSENNID /00142207/ [Suspect]
     Active Substance: SENNA LEAF
     Dosage: 12 MG, 1X/DAY

REACTIONS (8)
  - Delirium [Recovered/Resolved]
  - Vomiting [Unknown]
  - Somnolence [Unknown]
  - Dysarthria [Unknown]
  - Fall [Unknown]
  - Contusion [Unknown]
  - Altered state of consciousness [Unknown]
  - Urinary incontinence [Unknown]

NARRATIVE: CASE EVENT DATE: 20180201
